FAERS Safety Report 20406689 (Version 1)
Quarter: 2022Q1

REPORT INFORMATION
  Report Type: Other
  Country: FR (occurrence: None)
  Receive Date: 20220131
  Receipt Date: 20220131
  Transmission Date: 20220423
  Serious: Yes (Other)
  Sender: FDA-Public Use
  Company Number: FR-ROCHE-3012035

PATIENT
  Sex: Male

DRUGS (6)
  1. RITUXIMAB [Suspect]
     Active Substance: RITUXIMAB
     Indication: Susac^s syndrome
     Route: 065
     Dates: start: 2019, end: 2020
  2. MYCOPHENOLATE MOFETIL [Suspect]
     Active Substance: MYCOPHENOLATE MOFETIL
     Indication: Susac^s syndrome
     Route: 065
     Dates: start: 2010, end: 2017
  3. CYCLOPHOSPHAMIDE [Suspect]
     Active Substance: CYCLOPHOSPHAMIDE
     Indication: Susac^s syndrome
     Dosage: 12 CYCLES
     Route: 065
     Dates: start: 2017, end: 2018
  4. AZATHIOPRINE [Suspect]
     Active Substance: AZATHIOPRINE
     Indication: Susac^s syndrome
     Route: 065
     Dates: start: 2018, end: 2019
  5. TOCILIZUMAB [Suspect]
     Active Substance: TOCILIZUMAB
     Indication: Susac^s syndrome
     Route: 065
     Dates: start: 2020, end: 2021
  6. INFLIXIMAB [Concomitant]
     Active Substance: INFLIXIMAB
     Indication: Susac^s syndrome
     Route: 065
     Dates: start: 2021

REACTIONS (4)
  - Neoplasm [Unknown]
  - Nervous system disorder [Unknown]
  - Disease progression [Unknown]
  - Drug ineffective [Unknown]
